FAERS Safety Report 24091418 (Version 3)
Quarter: 2024Q3

REPORT INFORMATION
  Report Type: Report from Study
  Country: BR (occurrence: BR)
  Receive Date: 20240715
  Receipt Date: 20240916
  Transmission Date: 20241016
  Serious: Yes (Hospitalization, Other)
  Sender: ELI LILLY AND CO
  Company Number: BR-ELI_LILLY_AND_COMPANY-BR202401007676

PATIENT
  Age: 48 Year
  Sex: Female

DRUGS (2)
  1. FORTEO [Suspect]
     Active Substance: TERIPARATIDE
     Indication: Osteoporosis
     Dosage: 20 UG, DAILY
     Route: 058
     Dates: start: 20231018
  2. FORTEO [Suspect]
     Active Substance: TERIPARATIDE
     Dosage: 20 UG, DAILY
     Route: 058
     Dates: start: 20231018

REACTIONS (25)
  - Influenza [Unknown]
  - Sinusitis [Unknown]
  - Systemic lupus erythematosus [Unknown]
  - Renal failure [Unknown]
  - Injection site pain [Unknown]
  - Injection site bruising [Unknown]
  - Weight increased [Unknown]
  - Fluid retention [Unknown]
  - Pneumonia [Recovering/Resolving]
  - Oropharyngeal pain [Unknown]
  - Immunodeficiency [Unknown]
  - Blood creatinine abnormal [Unknown]
  - Malaise [Unknown]
  - Dengue fever [Recovering/Resolving]
  - Fall [Unknown]
  - Inappropriate schedule of product administration [Unknown]
  - Incorrect product administration duration [Unknown]
  - Onychoclasis [Unknown]
  - Peripheral swelling [Unknown]
  - Swelling face [Unknown]
  - Lacrimation increased [Unknown]
  - Weight fluctuation [Unknown]
  - Onychalgia [Unknown]
  - Gastrooesophageal reflux disease [Unknown]
  - Injection site discolouration [Unknown]

NARRATIVE: CASE EVENT DATE: 20240301
